FAERS Safety Report 7230259-7 (Version None)
Quarter: 2011Q1

REPORT INFORMATION
  Report Type: 
  Country: None (occurrence: None)
  Receive Date: 20110118
  Receipt Date: 20110110
  Transmission Date: 20110831
  Serious: No
  Sender: FDA-Public Use
  Company Number: US-PFIZER INC-2011006628

PATIENT
  Sex: Female

DRUGS (4)
  1. CUMADIN [Suspect]
     Dosage: 20 MG, 1X/DAY
     Dates: start: 20100801
  2. LOVENOX [Concomitant]
  3. CELEBREX [Suspect]
     Dosage: UNK
     Dates: end: 20101001
  4. ASPIRIN [Concomitant]

REACTIONS (3)
  - CHROMATURIA [None]
  - BACK PAIN [None]
  - RENAL PAIN [None]
